FAERS Safety Report 6156463-7 (Version None)
Quarter: 2009Q2

REPORT INFORMATION
  Report Type: 
  Country: None (occurrence: None)
  Receive Date: 20090413
  Receipt Date: 20090401
  Transmission Date: 20091009
  Serious: Yes (Hospitalization, Other)
  Sender: FDA-Public Use
  Company Number: 238354J08USA

PATIENT
  Age: 40 Year
  Sex: Female
  Weight: 114 kg

DRUGS (9)
  1. REBIF [Suspect]
     Indication: MULTIPLE SCLEROSIS
     Dosage: 44 MCG, 3 IN 1 WEEKS, SUBCUTANEOUS
     Route: 058
     Dates: start: 20060830, end: 20090301
  2. BACLOFEN [Concomitant]
  3. PREVACID [Concomitant]
  4. PAXIL [Concomitant]
  5. VICODIN [Concomitant]
  6. VALIUM [Concomitant]
  7. NEURONTIN [Concomitant]
  8. IBUPROFEN [Concomitant]
  9. ASPIRIN [Concomitant]

REACTIONS (11)
  - ASPIRATION [None]
  - CONVULSION [None]
  - COUGH [None]
  - DEHYDRATION [None]
  - DYSURIA [None]
  - EXOSTOSIS [None]
  - HEPATOMEGALY [None]
  - INTERVERTEBRAL DISC PROTRUSION [None]
  - MULTIPLE SCLEROSIS RELAPSE [None]
  - PANCREATITIS ACUTE [None]
  - TYPE 2 DIABETES MELLITUS [None]
